FAERS Safety Report 9771059 (Version 4)
Quarter: 2014Q1

REPORT INFORMATION
  Report Type: Spontaneous
  Country: US (occurrence: US)
  Receive Date: 20131218
  Receipt Date: 20140226
  Transmission Date: 20141002
  Serious: Yes (Hospitalization)
  Sender: FDA-Public Use
  Company Number: US-TEVA-451019USA

PATIENT
  Age: 61 Year
  Sex: Female
  Weight: 84.9 kg

DRUGS (5)
  1. AMPHETAMINE W/DEXTROAMPHETAMINE [Suspect]
     Indication: ATTENTION DEFICIT/HYPERACTIVITY DISORDER
  2. LYRICA [Suspect]
     Indication: FIBROMYALGIA
     Dosage: 225 MILLIGRAM DAILY;
  3. IMIPRAMINE [Concomitant]
  4. IODINE [Concomitant]
  5. AMBIEN [Concomitant]

REACTIONS (9)
  - Intervertebral disc injury [Unknown]
  - Tongue ulceration [Recovered/Resolved]
  - Urticaria [Unknown]
  - Pruritus [Unknown]
  - Hyperhidrosis [Unknown]
  - Insomnia [Unknown]
  - Nervousness [Unknown]
  - Arthropathy [Unknown]
  - Mood swings [Unknown]
